FAERS Safety Report 8189791-4 (Version None)
Quarter: 2012Q1

REPORT INFORMATION
  Report Type: 
  Country: None (occurrence: None)
  Receive Date: 20120307
  Receipt Date: 20110412
  Transmission Date: 20120608
  Serious: Yes (Hospitalization)
  Sender: FDA-Public Use
  Company Number: US-GLAXOSMITHKLINE-A0922685A

PATIENT
  Age: 60 Year
  Sex: Female

DRUGS (4)
  1. REQUIP [Suspect]
     Indication: RESTLESS LEGS SYNDROME
     Dosage: .5MG PER DAY
     Route: 048
     Dates: start: 20101201
  2. LIPITOR [Concomitant]
  3. PREMPRO [Concomitant]
  4. AMBIEN [Concomitant]

REACTIONS (1)
  - URINARY TRACT INFECTION [None]
